FAERS Safety Report 20213148 (Version 2)
Quarter: 2021Q4

REPORT INFORMATION
  Report Type: Spontaneous
  Country: US (occurrence: US)
  Receive Date: 20211221
  Receipt Date: 20211223
  Transmission Date: 20220303
  Serious: No
  Sender: FDA-Public Use
  Company Number: US-SANOFI-00895980

PATIENT
  Age: 63 Year
  Sex: Female

DRUGS (1)
  1. ADMELOG [Suspect]
     Active Substance: INSULIN LISPRO
     Indication: Type 2 diabetes mellitus
     Dosage: 8 IU, Q8H
     Route: 065

REACTIONS (2)
  - Injury associated with device [Unknown]
  - Device issue [Unknown]

NARRATIVE: CASE EVENT DATE: 20211213
